FAERS Safety Report 8069308-5 (Version None)
Quarter: 2012Q1

REPORT INFORMATION
  Report Type: 
  Country: None (occurrence: None)
  Receive Date: 20120125
  Receipt Date: 20120118
  Transmission Date: 20120608
  Serious: No
  Sender: FDA-Public Use
  Company Number: US-B.I. PHARMACEUTICALS,INC./RIDGEFIELD-2012-BP-01072BP

PATIENT
  Sex: Female

DRUGS (4)
  1. MULTI-VITAMIN [Concomitant]
     Indication: PROPHYLAXIS
     Route: 048
     Dates: start: 20060101
  2. SPIRIVA [Suspect]
     Indication: CHRONIC OBSTRUCTIVE PULMONARY DISEASE
     Dosage: 18 MCG
     Route: 055
     Dates: start: 20080101
  3. PROAIR HFA [Concomitant]
     Indication: ASTHMA
     Route: 055
  4. BENICAR [Concomitant]
     Indication: HYPERTENSION
     Dosage: 10 MG
     Route: 048
     Dates: start: 20090101

REACTIONS (3)
  - NASAL CONGESTION [None]
  - EAR INFECTION [None]
  - DRUG INEFFECTIVE [None]
